FAERS Safety Report 4414160-X (Version None)
Quarter: 2004Q3

REPORT INFORMATION
  Report Type: 
  Country: None (occurrence: None)
  Receive Date: 20040728
  Receipt Date: 20040712
  Transmission Date: 20050211
  Serious: Yes (Hospitalization)
  Sender: FDA-Public Use
  Company Number: 2004-DE-03824GD(0)

PATIENT
  Age: 53 Year
  Sex: Female
  Weight: 53 kg

DRUGS (2)
  1. AZATHIOPRINE [Suspect]
     Indication: COLITIS ULCERATIVE
     Dosage: SEE IMAGE
  2. PREDNISOLONE [Concomitant]

REACTIONS (8)
  - BONE MARROW DEPRESSION [None]
  - C-REACTIVE PROTEIN INCREASED [None]
  - DIARRHOEA [None]
  - DYSPNOEA [None]
  - LABORATORY TEST ABNORMAL [None]
  - LETHARGY [None]
  - NAUSEA [None]
  - NEUTROPENIC SEPSIS [None]
